FAERS Safety Report 24283482 (Version 1)
Quarter: 2024Q3

REPORT INFORMATION
  Report Type: Spontaneous
  Country: US (occurrence: US)
  Receive Date: 20240904
  Receipt Date: 20240904
  Transmission Date: 20241016
  Serious: No
  Sender: SUNOVION
  Company Number: US-SUMITOMO PHARMA SWITZERLAND GMBH-2024SPA001109

PATIENT

DRUGS (1)
  1. GEMTESA [Suspect]
     Active Substance: VIBEGRON
     Indication: Urinary incontinence
     Dosage: 4 YEARS AGO, TAKEN ONCE A DAY, MAY BE SWALLOWED, 74 MG, QD
     Route: 048

REACTIONS (2)
  - Weight increased [Unknown]
  - Pollakiuria [Unknown]

NARRATIVE: CASE EVENT DATE: 20240807
